FAERS Safety Report 10009743 (Version 2)
Quarter: 2014Q1

REPORT INFORMATION
  Report Type: Spontaneous
  Country: US (occurrence: US)
  Receive Date: 20140312
  Receipt Date: 20140312
  Transmission Date: 20141002
  Serious: No
  Sender: FDA-Public Use
  Company Number: US-INCYTE CORPORATION-2012IN002651

PATIENT
  Age: 77 Year
  Sex: Female
  Weight: 48.53 kg

DRUGS (10)
  1. JAKAFI [Suspect]
     Indication: MYELOFIBROSIS
     Dosage: 5 MG, BID
     Route: 048
     Dates: start: 20121025
  2. HYDREA [Concomitant]
  3. ACTONEL [Concomitant]
  4. PROZAC [Concomitant]
  5. KCL [Concomitant]
  6. LASIX [Concomitant]
  7. ZESTRIL [Concomitant]
  8. SYNTHROID [Concomitant]
  9. PRILOSEC [Concomitant]
  10. COMPAZINE [Concomitant]

REACTIONS (1)
  - Alopecia [Not Recovered/Not Resolved]
